FAERS Safety Report 6089235-2 (Version None)
Quarter: 2009Q1

REPORT INFORMATION
  Report Type: 
  Country: None (occurrence: None)
  Receive Date: 20090219
  Receipt Date: 20090122
  Transmission Date: 20090719
  Serious: Yes (Hospitalization)
  Sender: FDA-Public Use
  Company Number: FR-GUERBET-20090014

PATIENT
  Age: 35 Year
  Sex: Female
  Weight: 50 kg

DRUGS (1)
  1. HEXABRIX [Suspect]
     Indication: HYSTEROSALPINGOGRAM
     Dosage: 13, ML MILLILITRE(S), 1, 1,  INTRA-UTERINE
     Route: 015
     Dates: start: 20090121, end: 20090121

REACTIONS (3)
  - MALAISE [None]
  - PELVIC PAIN [None]
  - VOMITING [None]
